FAERS Safety Report 7585287-9 (Version None)
Quarter: 2011Q2

REPORT INFORMATION
  Report Type: 
  Country: None (occurrence: None)
  Receive Date: 20110531
  Receipt Date: 20100813
  Transmission Date: 20111010
  Serious: Yes (Other)
  Sender: FDA-Public Use
  Company Number: WAES 1008USA01704

PATIENT
  Age: 81 Year
  Sex: Female
  Weight: 76.6579 kg

DRUGS (15)
  1. NYSTATIN [Concomitant]
  2. DIOVAN HCT [Concomitant]
  3. PAXIL [Concomitant]
  4. ASPIRIN [Concomitant]
  5. FERROUS SULFATE TAB [Concomitant]
  6. CYANOCOBALAMIN [Concomitant]
  7. GLIPIZIDE [Concomitant]
  8. CENTRUM SILVER [Concomitant]
  9. OMEGA-3 MARINE TRIGLYCERIDES [Concomitant]
  10. JANUMET [Suspect]
     Indication: TYPE 2 DIABETES MELLITUS
     Dosage: 1000MG/50 MG/BID/PO
     Route: 048
     Dates: start: 20090313, end: 20100811
  11. BENEFIBER [Concomitant]
  12. CRESTOR [Concomitant]
  13. FLONASE [Concomitant]
  14. MELATONINA [Concomitant]
  15. TYLENOL-500 [Concomitant]

REACTIONS (4)
  - PANCREATITIS ACUTE [None]
  - LYMPHADENOPATHY [None]
  - RENAL CYST [None]
  - VOMITING [None]
